FAERS Safety Report 18526583 (Version 1)
Quarter: 2020Q4

REPORT INFORMATION
  Report Type: Spontaneous
  Country: US (occurrence: US)
  Receive Date: 20201120
  Receipt Date: 20201120
  Transmission Date: 20210114
  Serious: No
  Sender: FDA-Public Use
  Company Number: US-009507513-2010USA009592

PATIENT
  Age: 45 Year
  Sex: Male

DRUGS (1)
  1. INVANZ [Suspect]
     Active Substance: ERTAPENEM SODIUM
     Indication: ACHROMOBACTER INFECTION
     Dosage: UNK

REACTIONS (1)
  - Product use in unapproved indication [Unknown]
